FAERS Safety Report 20074997 (Version 11)
Quarter: 2023Q1

REPORT INFORMATION
  Report Type: Report from Study
  Country: CA (occurrence: CA)
  Receive Date: 20211116
  Receipt Date: 20230221
  Transmission Date: 20230417
  Serious: Yes (Hospitalization)
  Sender: FDA-Public Use
  Company Number: CA-JNJFOC-20211120484

PATIENT
  Age: 8 Year
  Sex: Male
  Weight: 27 kg

DRUGS (8)
  1. REMICADE [Suspect]
     Active Substance: INFLIXIMAB
     Indication: Colitis ulcerative
     Dosage: DOSE INCREASED
     Route: 042
     Dates: start: 20210807
  2. REMICADE [Suspect]
     Active Substance: INFLIXIMAB
     Dosage: DOSE INCREASED. RECEIVED 2 DOSES AND WAS THEN HOSPITALIZED
     Route: 042
  3. REMICADE [Suspect]
     Active Substance: INFLIXIMAB
     Dosage: DOSE: 500MG. ON 11-NOV-2021, THE PATIENT TOOK 7TH INFUSION
     Route: 042
  4. REMICADE [Suspect]
     Active Substance: INFLIXIMAB
     Dosage: PATIENT WOULD RELOAD AT 500MG 0,1,4, APPROVED ON 08-NOV-2021?RE-INDUCTION/CHANGE TO INDUCTION DOSING
     Route: 042
  5. REMICADE [Suspect]
     Active Substance: INFLIXIMAB
     Dosage: RELOAD AT 0,1,4 Q4
     Route: 042
  6. REMICADE [Suspect]
     Active Substance: INFLIXIMAB
     Dosage: LOW TDM ON 500MG EVERY 4 WEEKS
     Route: 042
  7. REMICADE [Suspect]
     Active Substance: INFLIXIMAB
     Dosage: PRESCRIBED 600MG WEEK 2 AND THEN CONTINUE ON 600MG Q4WEEK
     Route: 042
  8. REMICADE [Suspect]
     Active Substance: INFLIXIMAB
     Dosage: ORDERED A STAT DOSE
     Route: 042

REACTIONS (3)
  - Colitis ulcerative [Unknown]
  - Drug level decreased [Unknown]
  - Off label use [Unknown]

NARRATIVE: CASE EVENT DATE: 20210101
